FAERS Safety Report 9171548 (Version 1)
Quarter: 2013Q1

REPORT INFORMATION
  Report Type: Spontaneous
  Country: CA (occurrence: CA)
  Receive Date: 20130319
  Receipt Date: 20130319
  Transmission Date: 20140127
  Serious: Yes (Other)
  Sender: FDA-Public Use
  Company Number: CA-GLAXOSMITHKLINE-A1016204A

PATIENT
  Age: 67 Year
  Sex: Male

DRUGS (2)
  1. FLOVENT [Suspect]
     Indication: PRODUCT USED FOR UNKNOWN INDICATION
     Route: 065
     Dates: end: 1992
  2. SYMBICORT [Suspect]
     Indication: PRODUCT USED FOR UNKNOWN INDICATION
     Route: 065
     Dates: start: 1991, end: 2012

REACTIONS (5)
  - Electrocardiogram QT prolonged [Unknown]
  - Dysphonia [Unknown]
  - Throat irritation [Unknown]
  - Asthenia [Unknown]
  - Palpitations [Unknown]
